FAERS Safety Report 12310092 (Version 4)
Quarter: 2016Q3

REPORT INFORMATION
  Report Type: Spontaneous
  Country: US (occurrence: US)
  Receive Date: 20160427
  Receipt Date: 20160711
  Transmission Date: 20161109
  Serious: Yes (Hospitalization, Other)
  Sender: FDA-Public Use
  Company Number: US-ACTAVIS-2016-08350

PATIENT
  Age: 48 Year
  Sex: Female

DRUGS (4)
  1. ETHANOL [Suspect]
     Active Substance: ALCOHOL
     Indication: ALCOHOL ABUSE
     Dosage: UNK
     Route: 048
  2. LOPERAMIDE (UNKNOWN) [Suspect]
     Active Substance: LOPERAMIDE
     Indication: SUBSTANCE USE
     Dosage: 40 TABLETS OF 2 MG LOPERAMIDE 1 TO 2 TIMES A DAY FOR SEVERAL WEEKS
     Route: 048
  3. CLONAZEPAM (AELLC) [Suspect]
     Active Substance: CLONAZEPAM
     Indication: SUBSTANCE USE
     Dosage: UNK
     Route: 048
  4. LOPERAMIDE (UNKNOWN) [Suspect]
     Active Substance: LOPERAMIDE
     Indication: INTENTIONAL OVERDOSE

REACTIONS (13)
  - Blood lactic acid increased [Recovered/Resolved]
  - Drug abuse [Unknown]
  - Electrocardiogram QT prolonged [Recovered/Resolved]
  - Blood creatinine increased [Recovered/Resolved]
  - Dysarthria [Recovering/Resolving]
  - Confusional state [Recovering/Resolving]
  - Anion gap increased [Recovered/Resolved]
  - Hyperkalaemia [Recovered/Resolved]
  - Asthenia [Recovering/Resolving]
  - Electrocardiogram QRS complex prolonged [Recovered/Resolved]
  - Ventricular tachycardia [Recovered/Resolved]
  - Intentional overdose [Unknown]
  - Somnolence [Recovering/Resolving]
